FAERS Safety Report 15774362 (Version 1)
Quarter: 2018Q4

REPORT INFORMATION
  Report Type: Report from Study
  Country: IT (occurrence: IT)
  Receive Date: 20181229
  Receipt Date: 20181229
  Transmission Date: 20190205
  Serious: Yes (Life-Threatening, Hospitalization, Other)
  Sender: FDA-Public Use
  Company Number: IT-INDICUS PHARMA-000565

PATIENT
  Age: 58 Year
  Sex: Male

DRUGS (6)
  1. ACETYLSALICYLIC ACID [Concomitant]
     Active Substance: ASPIRIN
  2. METFORMIN [Suspect]
     Active Substance: METFORMIN HYDROCHLORIDE
     Indication: TYPE 2 DIABETES MELLITUS
     Dosage: 1000 MG B.I.D
  3. SIMVASTATIN. [Concomitant]
     Active Substance: SIMVASTATIN
  4. RAMIPRIL. [Concomitant]
     Active Substance: RAMIPRIL
  5. CLOPIDOGREL [Concomitant]
     Active Substance: CLOPIDOGREL BISULFATE
  6. BISOPROLOL [Concomitant]
     Active Substance: BISOPROLOL

REACTIONS (4)
  - Lactic acidosis [Unknown]
  - Pneumonia staphylococcal [Unknown]
  - Acute kidney injury [Unknown]
  - Cerebrovascular accident [Unknown]
